FAERS Safety Report 25187275 (Version 1)
Quarter: 2025Q2

REPORT INFORMATION
  Report Type: Spontaneous
  Country: NL (occurrence: NL)
  Receive Date: 20250411
  Receipt Date: 20250411
  Transmission Date: 20250716
  Serious: Yes (Hospitalization, Other)
  Sender: JOHNSON AND JOHNSON
  Company Number: None

PATIENT
  Age: 64 Year
  Sex: Female

DRUGS (1)
  1. SPRAVATO [Suspect]
     Active Substance: ESKETAMINE
     Indication: Depression
     Dosage: 2X56MG/WEEK
     Route: 045
     Dates: start: 20250203, end: 20250217

REACTIONS (5)
  - Psychotic behaviour [Recovered/Resolved]
  - Disinhibition [Recovered/Resolved]
  - Delirium [Unknown]
  - Epilepsy [Unknown]
  - Confusional state [Recovered/Resolved]
